FAERS Safety Report 23060144 (Version 1)
Quarter: 2023Q4

REPORT INFORMATION
  Report Type: Spontaneous
  Country: ES (occurrence: None)
  Receive Date: 20231012
  Receipt Date: 20231012
  Transmission Date: 20240110
  Serious: Yes (Life-Threatening, Hospitalization, Other)
  Sender: FDA-Public Use
  Company Number: 2023A224681

PATIENT
  Age: 91 Year
  Sex: Female

DRUGS (6)
  1. OMEPRAZOLE [Suspect]
     Active Substance: OMEPRAZOLE
     Indication: Hiatus hernia
     Dosage: 0-0-1
     Route: 048
     Dates: start: 20190327
  2. CLONAZEPAM [Suspect]
     Active Substance: CLONAZEPAM
  3. METHOTREXATE [Interacting]
     Active Substance: METHOTREXATE
     Indication: Rheumatoid arthritis
     Dosage: 20 MG WEEKLY
     Route: 058
     Dates: start: 20180424, end: 20230828
  4. ALDACTONE [Concomitant]
     Active Substance: SPIRONOLACTONE
     Indication: Oedema
     Dosage: 0-1-0
     Route: 048
     Dates: start: 20230609, end: 20230727
  5. FUROSEMIDE [Concomitant]
     Active Substance: FUROSEMIDE
     Indication: Oedema
     Dosage: 1-0-0
     Route: 048
     Dates: start: 20230609, end: 20230626
  6. ADALIMUMAB [Concomitant]
     Active Substance: ADALIMUMAB
     Indication: Rheumatoid arthritis
     Dosage: 40 MG BIWEEKLY
     Route: 058
     Dates: start: 20220203, end: 20230815

REACTIONS (5)
  - Pancytopenia [Recovered/Resolved]
  - Acute kidney injury [Unknown]
  - Cachexia [Recovered/Resolved]
  - Inappropriate antidiuretic hormone secretion [Unknown]
  - Hypertension [Unknown]

NARRATIVE: CASE EVENT DATE: 20230725
